FAERS Safety Report 6817946-7 (Version None)
Quarter: 2010Q3

REPORT INFORMATION
  Report Type: 
  Country: None (occurrence: None)
  Receive Date: 20100706
  Receipt Date: 20100625
  Transmission Date: 20110219
  Serious: Yes (Other)
  Sender: FDA-Public Use
  Company Number: US-AMGEN-QUU420752

PATIENT
  Sex: Male

DRUGS (3)
  1. NPLATE [Suspect]
     Indication: IDIOPATHIC THROMBOCYTOPENIC PURPURA
     Dates: start: 20090113
  2. PLATELETS [Concomitant]
     Indication: IDIOPATHIC THROMBOCYTOPENIC PURPURA
     Route: 042
  3. RITUXIMAB [Concomitant]
     Indication: IDIOPATHIC THROMBOCYTOPENIC PURPURA
     Dates: start: 20081125

REACTIONS (1)
  - PYOTHORAX [None]
